FAERS Safety Report 9435561 (Version 3)
Quarter: 2014Q3

REPORT INFORMATION
  Report Type: Spontaneous
  Country: US (occurrence: US)
  Receive Date: 20130801
  Receipt Date: 20140716
  Transmission Date: 20150326
  Serious: Yes (Hospitalization, Disabling)
  Sender: FDA-Public Use
  Company Number: US-009507513-1307USA017105

PATIENT
  Sex: Female
  Weight: 68.27 kg

DRUGS (5)
  1. NUVARING [Suspect]
     Active Substance: ETHINYL ESTRADIOL\ETONOGESTREL
     Indication: FIBROMA
  2. SEROQUEL [Concomitant]
     Active Substance: QUETIAPINE FUMARATE
     Indication: BIPOLAR DISORDER
     Dosage: 100 MG, QD
     Route: 048
  3. ALBUTEROL. [Concomitant]
     Active Substance: ALBUTEROL
     Indication: ASTHMA
     Dosage: UNK, PRN
  4. NUVARING [Suspect]
     Active Substance: ETHINYL ESTRADIOL\ETONOGESTREL
     Indication: ANALGESIC THERAPY
     Dosage: LEAVE IN PLACE 3 WKS, REMOVE WK 4, NEW RING WK 5
     Route: 067
     Dates: start: 20100101, end: 20101105
  5. LAMICTAL [Concomitant]
     Active Substance: LAMOTRIGINE
     Indication: BIPOLAR DISORDER
     Dosage: 100 MG, QD
     Route: 048

REACTIONS (11)
  - Depression [Unknown]
  - Angina pectoris [Unknown]
  - Dysmenorrhoea [Unknown]
  - Faeces discoloured [Recovered/Resolved]
  - Coagulopathy [Unknown]
  - Gastrooesophageal reflux disease [Unknown]
  - Hepatic neoplasm [Unknown]
  - Portal vein thrombosis [Unknown]
  - Anxiety [Unknown]
  - Off label use [Unknown]
  - Vomiting [Unknown]

NARRATIVE: CASE EVENT DATE: 201001
